FAERS Safety Report 5779928-6 (Version None)
Quarter: 2008Q2

REPORT INFORMATION
  Report Type: 
  Country: None (occurrence: None)
  Receive Date: 20080616
  Receipt Date: 20080411
  Transmission Date: 20081010
  Serious: Yes (Hospitalization)
  Sender: FDA-Public Use
  Company Number: ADE 08033

PATIENT
  Sex: Male

DRUGS (1)
  1. POLYETHYLENE GLYCOL 3350 [Suspect]
     Indication: CONSTIPATION
     Dosage: 17 GRAMS, DAILY, ORAL
     Route: 048

REACTIONS (2)
  - CONJUNCTIVITIS ALLERGIC [None]
  - EOSINOPHILIC OESOPHAGITIS [None]
